FAERS Safety Report 4658067-1 (Version None)
Quarter: 2005Q2

REPORT INFORMATION
  Report Type: 
  Country: None (occurrence: None)
  Receive Date: 20050510
  Receipt Date: 20050428
  Transmission Date: 20051028
  Serious: Yes (Other)
  Sender: FDA-Public Use
  Company Number: 2005024316

PATIENT
  Age: 67 Year
  Sex: Male
  Weight: 95.2554 kg

DRUGS (4)
  1. BENYLIN DAY (PARACEMATOL, PSEUDOEPHEDRINE) [Suspect]
     Indication: NASOPHARYNGITIS
     Dosage: UNSPECIFIED AMOUNT TWICE OVER
  2. BENYLIN NIGHT (DIPHENHYDRAMINE, PARACEMATOL) [Suspect]
     Indication: NASOPHARYNGITIS
     Dosage: UNSPECIFIED AMOUNT TWICE OVER
  3. INSULIN [Concomitant]
  4. INSULIN GLARGINE (INSULIN GLARGINE) [Concomitant]

REACTIONS (1)
  - BLOOD GLUCOSE ABNORMAL [None]
